FAERS Safety Report 16878902 (Version 1)
Quarter: 2019Q4

REPORT INFORMATION
  Report Type: Spontaneous
  Country: US (occurrence: US)
  Receive Date: 20191002
  Receipt Date: 20191002
  Transmission Date: 20200122
  Serious: No
  Sender: FDA-Public Use
  Company Number: US-GILEAD-2019-0431494

PATIENT
  Age: 83 Year
  Sex: Male

DRUGS (11)
  1. GLIPIZIDE. [Concomitant]
     Active Substance: GLIPIZIDE
  2. NTG [Concomitant]
     Active Substance: NITROGLYCERIN
     Indication: CHEST DISCOMFORT
  3. ATORVASTATIN [Concomitant]
     Active Substance: ATORVASTATIN
  4. ASPIRIN 81 [Concomitant]
     Active Substance: ASPIRIN
  5. GABAPENTINE [Concomitant]
     Active Substance: GABAPENTIN
  6. ISORBIDE [ISOSORBIDE MONONITRATE] [Concomitant]
  7. RANEXA [Suspect]
     Active Substance: RANOLAZINE
     Indication: CHEST DISCOMFORT
     Dosage: 500 MG, BID
     Route: 065
     Dates: start: 20190930
  8. VALSARTAN. [Concomitant]
     Active Substance: VALSARTAN
  9. AMLODIPINE BESYLATE. [Concomitant]
     Active Substance: AMLODIPINE BESYLATE
  10. METFORMIN [Concomitant]
     Active Substance: METFORMIN HYDROCHLORIDE
  11. TYLENOL [Concomitant]
     Active Substance: ACETAMINOPHEN
     Indication: ARTHRITIS

REACTIONS (1)
  - Nausea [Recovering/Resolving]

NARRATIVE: CASE EVENT DATE: 20191001
